FAERS Safety Report 16243436 (Version 2)
Quarter: 2019Q2

REPORT INFORMATION
  Report Type: Spontaneous
  Country: RO (occurrence: RO)
  Receive Date: 20190426
  Receipt Date: 20190604
  Transmission Date: 20190711
  Serious: Yes (Other)
  Sender: FDA-Public Use
  Company Number: RO-PFIZER INC-2019110831

PATIENT
  Age: 69 Year
  Sex: Male
  Weight: 54 kg

DRUGS (3)
  1. AMOXICILLIN. [Concomitant]
     Active Substance: AMOXICILLIN
     Dosage: UNK
  2. SUTENT [Suspect]
     Active Substance: SUNITINIB MALATE
     Indication: METASTATIC RENAL CELL CARCINOMA
     Dosage: 50 MG, UNK
     Dates: start: 20160915, end: 20190419
  3. TAVANIC [Concomitant]
     Active Substance: LEVOFLOXACIN
     Dosage: UNK

REACTIONS (6)
  - Helicobacter infection [Unknown]
  - Pyloric stenosis [Unknown]
  - Gastrooesophageal reflux disease [Unknown]
  - Dermatitis [Unknown]
  - Arthralgia [Unknown]
  - Gastrointestinal ulcer [Unknown]

NARRATIVE: CASE EVENT DATE: 20190301
